FAERS Safety Report 5774422-0 (Version None)
Quarter: 2008Q2

REPORT INFORMATION
  Report Type: 
  Country: None (occurrence: None)
  Receive Date: 20080616
  Receipt Date: 20080611
  Transmission Date: 20081010
  Serious: Yes (Other)
  Sender: FDA-Public Use
  Company Number: BR-ASTRAZENECA-2008UW11823

PATIENT
  Age: 85 Year
  Sex: Female
  Weight: 60 kg

DRUGS (7)
  1. CRESTOR [Suspect]
     Indication: HYPERCHOLESTEROLAEMIA
     Route: 048
     Dates: end: 20071201
  2. CRESTOR [Suspect]
     Route: 048
     Dates: start: 20080201, end: 20080201
  3. CRESTOR [Suspect]
     Route: 048
     Dates: start: 20080604
  4. VASTAREL [Concomitant]
     Dates: end: 20071201
  5. SUSTRATE [Concomitant]
     Indication: HYPERTENSION
     Route: 048
  6. ATENOLOL [Concomitant]
     Indication: HYPERTENSION
     Route: 048
  7. ESSEN [Concomitant]
     Indication: PROPHYLAXIS
     Route: 048
     Dates: start: 20071201

REACTIONS (5)
  - BLOOD PRESSURE INCREASED [None]
  - CHEST PAIN [None]
  - LIVER DISORDER [None]
  - NAUSEA [None]
  - VOMITING [None]
